FAERS Safety Report 4345973-0 (Version None)
Quarter: 2004Q2

REPORT INFORMATION
  Report Type: 
  Country: None (occurrence: None)
  Receive Date: 20040422
  Receipt Date: 20040408
  Transmission Date: 20050107
  Serious: Yes (Other)
  Sender: FDA-Public Use
  Company Number: GBWYE697408APR04

PATIENT
  Sex: Male

DRUGS (2)
  1. EFFEXOR [Suspect]
     Indication: GENERALISED ANXIETY DISORDER
     Dosage: 300MG DAILY
     Route: 048
  2. UNSPECIFIED BENZODIAZEPINE (UNSPECIFIED BENZODIAZEPINE) [Concomitant]

REACTIONS (4)
  - ABNORMAL BEHAVIOUR [None]
  - AGGRESSION [None]
  - CONDITION AGGRAVATED [None]
  - IRRITABILITY [None]
